FAERS Safety Report 11032303 (Version 1)
Quarter: 2015Q2

REPORT INFORMATION
  Report Type: Spontaneous
  Country: US (occurrence: None)
  Receive Date: 20150414
  Receipt Date: 20150414
  Transmission Date: 20150821
  Serious: Yes (Hospitalization)
  Sender: FDA-Public Use
  Company Number: US-001512

PATIENT
  Sex: Male

DRUGS (2)
  1. GATTEX [Suspect]
     Active Substance: TEDUGLUTIDE\WATER
     Indication: SHORT-BOWEL SYNDROME
     Dosage: DF
     Route: 058
     Dates: start: 20141124
  2. SOLUTIONS FORPARENTERAL NUTRITION [Concomitant]

REACTIONS (6)
  - Nausea [None]
  - Gastrointestinal stoma complication [None]
  - Gastrooesophageal reflux disease [None]
  - Vomiting [None]
  - Malaise [None]
  - Burning sensation [None]

NARRATIVE: CASE EVENT DATE: 2014
